FAERS Safety Report 21105686 (Version 1)
Quarter: 2022Q3

REPORT INFORMATION
  Report Type: Spontaneous
  Country: US (occurrence: US)
  Receive Date: 20220720
  Receipt Date: 20220720
  Transmission Date: 20221027
  Serious: No
  Sender: FDA-Public Use
  Company Number: US-BAYER-2022A098854

PATIENT
  Sex: Female

DRUGS (1)
  1. BETASERON [Suspect]
     Active Substance: INTERFERON BETA-1B
     Indication: Multiple sclerosis
     Dosage: DOSE 0.25

REACTIONS (5)
  - Hypoaesthesia [None]
  - Paraesthesia [None]
  - Dizziness [None]
  - Fatigue [None]
  - Somnolence [None]
